FAERS Safety Report 15411489 (Version 1)
Quarter: 2018Q3

REPORT INFORMATION
  Report Type: Report from Study
  Country: GB (occurrence: GB)
  Receive Date: 20180921
  Receipt Date: 20180921
  Transmission Date: 20181010
  Serious: Yes (Other)
  Sender: FDA-Public Use
  Company Number: GB-ROCHE-2016858

PATIENT
  Age: 47 Year
  Sex: Female

DRUGS (6)
  1. ROACTEMRA [Suspect]
     Active Substance: TOCILIZUMAB
     Indication: RHEUMATOID ARTHRITIS
     Route: 058
     Dates: start: 20171012
  2. FOLIC ACID. [Concomitant]
     Active Substance: FOLIC ACID
     Indication: RHEUMATOID ARTHRITIS
     Route: 048
  3. DULOXETINE. [Concomitant]
     Active Substance: DULOXETINE
     Indication: ASTHMA
     Route: 048
     Dates: start: 201712
  4. OMEPRAZOLE. [Concomitant]
     Active Substance: OMEPRAZOLE
     Route: 048
  5. CALCICHEW D3 [Concomitant]
     Active Substance: CALCIUM\CHOLECALCIFEROL
     Route: 048
  6. FERROUS SULFATE. [Concomitant]
     Active Substance: FERROUS SULFATE
     Indication: BLOOD IRON DECREASED
     Route: 048

REACTIONS (23)
  - Dizziness [Recovered/Resolved]
  - Dry throat [Unknown]
  - Dyspnoea [Unknown]
  - Vomiting [Unknown]
  - Hypersensitivity [Unknown]
  - Influenza [Unknown]
  - Malaise [Recovered/Resolved]
  - Injection site erythema [Unknown]
  - Rash [Unknown]
  - Malaise [Unknown]
  - Injection site pruritus [Not Recovered/Not Resolved]
  - Lower respiratory tract infection [Unknown]
  - Abdominal discomfort [Unknown]
  - Throat irritation [Unknown]
  - Headache [Unknown]
  - Cough [Unknown]
  - Increased upper airway secretion [Unknown]
  - Injection site mass [Not Recovered/Not Resolved]
  - Feeling abnormal [Unknown]
  - Nausea [Not Recovered/Not Resolved]
  - Throat tightness [Unknown]
  - Aphonia [Unknown]
  - Drug ineffective [Unknown]
